FAERS Safety Report 9796918 (Version 1)
Quarter: 2014Q1

REPORT INFORMATION
  Report Type: Spontaneous
  Country: US (occurrence: US)
  Receive Date: 20140104
  Receipt Date: 20140104
  Transmission Date: 20141002
  Serious: Yes (Death, Other)
  Sender: FDA-Public Use
  Company Number: US-UCBSA-107576

PATIENT
  Age: 30 Year
  Sex: Male

DRUGS (2)
  1. ALPRAZOLAM [Suspect]
     Dosage: ROUTE: INGESTION+UNKNOWN
  2. COCAINE [Suspect]
     Dosage: ROUTE: INGESTION+UNKNOWN
     Route: 048

REACTIONS (1)
  - Drug abuse [Fatal]
